FAERS Safety Report 13089977 (Version 2)
Quarter: 2017Q1

REPORT INFORMATION
  Report Type: Spontaneous
  Country: US (occurrence: US)
  Receive Date: 20170105
  Receipt Date: 20170324
  Transmission Date: 20170428
  Serious: Yes (Other)
  Sender: FDA-Public Use
  Company Number: US-BRISTOL-MYERS SQUIBB COMPANY-BMS-2017-000143

PATIENT
  Sex: Female

DRUGS (1)
  1. ELIQUIS [Suspect]
     Active Substance: APIXABAN
     Indication: CEREBROVASCULAR ACCIDENT PROPHYLAXIS
     Dosage: UNKNOWN
     Route: 048
     Dates: end: 20170125

REACTIONS (5)
  - Headache [Recovering/Resolving]
  - Spinal pain [Recovering/Resolving]
  - Pericardial effusion [Unknown]
  - Eye disorder [Recovering/Resolving]
  - Musculoskeletal chest pain [Recovering/Resolving]
